FAERS Safety Report 9700543 (Version 2)
Quarter: 2014Q2

REPORT INFORMATION
  Report Type: Report from Study
  Country: JP (occurrence: JP)
  Receive Date: 20131121
  Receipt Date: 20140611
  Transmission Date: 20141212
  Serious: Yes (Hospitalization)
  Sender: FDA-Public Use
  Company Number: PHHY2013JP132511

PATIENT
  Sex: Female

DRUGS (1)
  1. ACZ885 [Suspect]
     Indication: CRYOPYRIN ASSOCIATED PERIODIC SYNDROME
     Dosage: 150 MG, UNK
     Route: 058
     Dates: start: 20130423

REACTIONS (3)
  - Transient ischaemic attack [Recovered/Resolved]
  - Disorientation [Recovered/Resolved]
  - Nasopharyngitis [Unknown]
